FAERS Safety Report 14720372 (Version 1)
Quarter: 2018Q2

REPORT INFORMATION
  Report Type: Spontaneous
  Country: DE (occurrence: DE)
  Receive Date: 20180405
  Receipt Date: 20180405
  Transmission Date: 20180711
  Serious: Yes (Congenital Anomaly)
  Sender: FDA-Public Use
  Company Number: DE-TEVA-2018-DE-877767

PATIENT
  Age: 1 Day
  Sex: Male
  Weight: 3.26 kg

DRUGS (4)
  1. UTROGEST [Concomitant]
     Active Substance: PROGESTERONE
     Indication: PROGESTERONE DECREASED
     Dosage: 100 MILLIGRAM DAILY;
     Route: 064
     Dates: start: 20161022, end: 20161023
  2. FOLS?URE [Concomitant]
     Indication: DETOXIFICATION
     Dosage: 5 MILLIGRAM DAILY;
     Route: 064
     Dates: start: 20161022, end: 20161024
  3. METHOTREXAT [Suspect]
     Active Substance: METHOTREXATE
     Indication: ACCIDENTAL EXPOSURE TO PRODUCT
     Dosage: 15 MILLIGRAM DAILY; 15 [MG/D ]/ ONCE. RECEIVED MTX INSTEAD OF DALTEPARIN
     Route: 064
     Dates: start: 20161022, end: 20161022
  4. FRAGMIN [Concomitant]
     Active Substance: DALTEPARIN SODIUM
     Indication: FACTOR V LEIDEN MUTATION
     Route: 064

REACTIONS (1)
  - Anal atresia [Unknown]

NARRATIVE: CASE EVENT DATE: 20170606
